FAERS Safety Report 5050115-2 (Version None)
Quarter: 2006Q3

REPORT INFORMATION
  Report Type: 
  Country: None (occurrence: None)
  Receive Date: 20060713
  Receipt Date: 20060619
  Transmission Date: 20061208
  Serious: Yes (Hospitalization)
  Sender: FDA-Public Use
  Company Number: GBWYE744419JUN06

PATIENT
  Sex: Male
  Weight: 68 kg

DRUGS (9)
  1. ENBREL [Suspect]
     Indication: RHEUMATOID ARTHRITIS
     Dosage: 25MG FREQUENCY UNKNOWN
     Route: 058
     Dates: start: 20030101
  2. FUROSEMIDE [Concomitant]
     Dosage: UNKNOWN
  3. PERINDOPRIL ERUMINE [Concomitant]
     Dosage: UNKNOWN
  4. ISMN [Concomitant]
     Dosage: UNKNOWN
  5. RISEDRONATE [Concomitant]
     Dosage: UNKNOWN
  6. SIMVASTATIN [Concomitant]
     Dosage: UNKNOWN
  7. CODEINE PHOSPHATE/PARACETAMOL [Concomitant]
     Dosage: UNKNOWN
  8. WARFARIN SODIUM [Concomitant]
     Dosage: UNKNOWN
  9. METOPROLOL TARTRATE [Concomitant]
     Dosage: UNKNOWN

REACTIONS (2)
  - CEREBROVASCULAR ACCIDENT [None]
  - ISCHAEMIC STROKE [None]
